FAERS Safety Report 6534948-9 (Version None)
Quarter: 2010Q1

REPORT INFORMATION
  Report Type: 
  Country: None (occurrence: None)
  Receive Date: 20100111
  Receipt Date: 20100111
  Transmission Date: 20100710
  Serious: Yes (Hospitalization)
  Sender: FDA-Public Use
  Company Number: None

PATIENT
  Sex: Male
  Weight: 90.3 kg

DRUGS (13)
  1. CISPLATIN [Suspect]
     Dosage: 123 MG
  2. ETOPOSIDE [Suspect]
     Dosage: 432 MG
  3. G-CSF (FILGRASTIM, AMGEN) [Suspect]
     Dosage: 1920 MG
  4. TOPOTECAN [Suspect]
     Dosage: 4.5 MG
  5. ALBUTEROL [Concomitant]
  6. ALLOPURINOL [Concomitant]
  7. ATENOLOL [Concomitant]
  8. CARDIZEM [Concomitant]
  9. COUMADIN [Concomitant]
  10. FORADIL [Concomitant]
  11. LASIX [Concomitant]
  12. LIPITOR [Concomitant]
  13. SPIRIVA [Concomitant]

REACTIONS (7)
  - ATRIAL FIBRILLATION [None]
  - DEPRESSED LEVEL OF CONSCIOUSNESS [None]
  - ESCHERICHIA SEPSIS [None]
  - HYPOXIA [None]
  - NEUTROPENIA [None]
  - SEPTIC SHOCK [None]
  - STREPTOCOCCAL SEPSIS [None]
